FAERS Safety Report 8961116 (Version 1)
Quarter: 2012Q4

REPORT INFORMATION
  Report Type: 
  Country: US (occurrence: US)
  Receive Date: 20121213
  Receipt Date: 20121213
  Transmission Date: 20130627
  Serious: No
  Sender: FDA-Public Use
  Company Number: US-ALLERGAN-1213261US

PATIENT
  Age: 75 Year
  Sex: Female

DRUGS (2)
  1. LUMIGAN� 0.01% [Suspect]
     Indication: GLAUCOMA
     Dosage: 2 Gtt, qhs
     Route: 047
     Dates: start: 201206
  2. MOISTERIZER [Concomitant]

REACTIONS (10)
  - Hyperaesthesia [Recovering/Resolving]
  - Burning sensation [Unknown]
  - Erythema [Unknown]
  - Swelling face [Unknown]
  - Pruritus [Unknown]
  - Hyperaesthesia [Unknown]
  - Skin hyperpigmentation [Not Recovered/Not Resolved]
  - Eyelash hyperpigmentation [Not Recovered/Not Resolved]
  - Growth of eyelashes [Not Recovered/Not Resolved]
  - Growth of eyelashes [Not Recovered/Not Resolved]
